FAERS Safety Report 17953361 (Version 1)
Quarter: 2020Q2

REPORT INFORMATION
  Report Type: Spontaneous
  Country: CA (occurrence: CA)
  Receive Date: 20200628
  Receipt Date: 20200628
  Transmission Date: 20200714
  Serious: Yes (Other)
  Sender: FDA-Public Use
  Company Number: CA-JNJFOC-20200629112

PATIENT
  Sex: Female

DRUGS (3)
  1. INFLECTRA [Suspect]
     Active Substance: INFLIXIMAB-DYYB
     Indication: CROHN^S DISEASE
     Route: 042
     Dates: start: 20170712
  2. LORAZEPAM. [Concomitant]
     Active Substance: LORAZEPAM
     Route: 060
  3. IMODIUM [Suspect]
     Active Substance: LOPERAMIDE HYDROCHLORIDE
     Indication: MUSCLE SPASMS
     Route: 048

REACTIONS (3)
  - Constipation [Unknown]
  - Post procedural haemorrhage [Unknown]
  - Post procedural discharge [Unknown]

NARRATIVE: CASE EVENT DATE: 2020
